FAERS Safety Report 21780394 (Version 1)
Quarter: 2022Q4

REPORT INFORMATION
  Report Type: Report from Study
  Country: US (occurrence: US)
  Receive Date: 20221227
  Receipt Date: 20221227
  Transmission Date: 20230113
  Serious: No
  Sender: FDA-Public Use
  Company Number: US-ABBVIE-4248838

PATIENT
  Age: 57 Year
  Sex: Female

DRUGS (1)
  1. RINVOQ [Suspect]
     Active Substance: UPADACITINIB
     Indication: Rheumatoid arthritis
     Route: 048
     Dates: start: 20221001

REACTIONS (9)
  - Pyrexia [Unknown]
  - Infection [Recovering/Resolving]
  - Nausea [Unknown]
  - Pain [Unknown]
  - Headache [Unknown]
  - Rheumatoid arthritis [Unknown]
  - Influenza [Unknown]
  - Retching [Unknown]
  - Hyperhidrosis [Unknown]

NARRATIVE: CASE EVENT DATE: 20221201
